APPROVED DRUG PRODUCT: ALISKIREN HEMIFUMARATE
Active Ingredient: ALISKIREN HEMIFUMARATE
Strength: EQ 300MG BASE
Dosage Form/Route: TABLET;ORAL
Application: A206665 | Product #002 | TE Code: AB
Applicant: PH HEALTH LTD
Approved: Mar 22, 2019 | RLD: No | RS: No | Type: RX